FAERS Safety Report 23396702 (Version 2)
Quarter: 2025Q1

REPORT INFORMATION
  Report Type: Report from Study
  Country: US (occurrence: US)
  Receive Date: 20240112
  Receipt Date: 20250211
  Transmission Date: 20250408
  Serious: Yes (Hospitalization)
  Sender: RECORDATI
  Company Number: US-RECORDATI RARE DISEASE INC.-2024000072

PATIENT

DRUGS (13)
  1. CARBAGLU [Suspect]
     Active Substance: CARGLUMIC ACID
     Indication: Propionic acidaemia
     Dosage: 900 MG (4 AND ONE-HALF TABLETS) TWO TIMES PER DAY
  2. CARBAGLU [Suspect]
     Active Substance: CARGLUMIC ACID
     Dosage: 900 MG (4 AND ONE-HALF TABLETS) TWO TIMES PER DAY
  3. CARBAGLU [Suspect]
     Active Substance: CARGLUMIC ACID
  4. CARBAGLU [Suspect]
     Active Substance: CARGLUMIC ACID
  5. CARBAGLU [Suspect]
     Active Substance: CARGLUMIC ACID
  6. VALINE [Concomitant]
     Active Substance: VALINE
     Indication: Product used for unknown indication
  7. FERROUS SULFATE [Concomitant]
     Active Substance: FERROUS SULFATE
     Indication: Product used for unknown indication
  8. BIOTIN [Concomitant]
     Active Substance: BIOTIN
     Indication: Product used for unknown indication
  9. LEVOCARNITINE [Concomitant]
     Active Substance: LEVOCARNITINE
     Indication: Product used for unknown indication
  10. KEPPRA [Concomitant]
     Active Substance: LEVETIRACETAM
     Indication: Product used for unknown indication
  11. OMEPRAZOLE [Concomitant]
     Active Substance: OMEPRAZOLE
     Indication: Product used for unknown indication
  12. VITAMIN D3 [Concomitant]
     Active Substance: CHOLECALCIFEROL
     Indication: Product used for unknown indication
  13. ISOLEUCINE [Concomitant]
     Active Substance: ISOLEUCINE
     Indication: Product used for unknown indication

REACTIONS (2)
  - Hospitalisation [Unknown]
  - Wrong dose [Recovered/Resolved]
